FAERS Safety Report 25194871 (Version 2)
Quarter: 2025Q2

REPORT INFORMATION
  Report Type: Spontaneous
  Country: CN (occurrence: CN)
  Receive Date: 20250414
  Receipt Date: 20250514
  Transmission Date: 20250717
  Serious: Yes (Other)
  Sender: ALEXION PHARMACEUTICALS
  Company Number: CN-AstraZeneca-CH-00844389A

PATIENT
  Age: 75 Year
  Weight: 130 kg

DRUGS (2)
  1. LYNPARZA [Suspect]
     Active Substance: OLAPARIB
     Indication: Malignant peritoneal neoplasm
     Dosage: 2 DOSAGE FORM, BID
  2. LYNPARZA [Suspect]
     Active Substance: OLAPARIB
     Dosage: 1 DOSAGE FORM, BID

REACTIONS (7)
  - Liver injury [Not Recovered/Not Resolved]
  - Decreased appetite [Recovering/Resolving]
  - Frequent bowel movements [Recovering/Resolving]
  - Ageusia [Recovering/Resolving]
  - Hepatic cyst [Not Recovered/Not Resolved]
  - Abdominal discomfort [Recovering/Resolving]
  - Chronic gastritis [Unknown]
